FAERS Safety Report 6025371-4 (Version None)
Quarter: 2008Q4

REPORT INFORMATION
  Report Type: 
  Country: None (occurrence: None)
  Receive Date: 20081229
  Receipt Date: 20081229
  Transmission Date: 20090506
  Serious: Yes (Other)
  Sender: FDA-Public Use
  Company Number: None

PATIENT
  Age: 51 Year
  Sex: Male
  Weight: 90.7194 kg

DRUGS (1)
  1. METRONIDAZOLE [Suspect]
     Indication: TOOTH INFECTION
     Dosage: 1 TABLET PER 6 HOURS PO
     Route: 048
     Dates: start: 20081226, end: 20081228

REACTIONS (4)
  - ABDOMINAL DISTENSION [None]
  - DRY MOUTH [None]
  - DYSPNOEA [None]
  - FATIGUE [None]
